FAERS Safety Report 4736800-8 (Version None)
Quarter: 2005Q3

REPORT INFORMATION
  Report Type: 
  Country: None (occurrence: None)
  Receive Date: 20050808
  Receipt Date: 20050419
  Transmission Date: 20060218
  Serious: Yes (Other)
  Sender: FDA-Public Use
  Company Number: US-MERCK-0504USA03718

PATIENT
  Age: 75 Year
  Sex: Male
  Weight: 93 kg

DRUGS (9)
  1. VIOXX [Suspect]
     Indication: ARTHRITIS
     Route: 048
     Dates: start: 20031103, end: 20040620
  2. ALLOPURINOL [Concomitant]
     Route: 065
  3. ASPIRIN [Concomitant]
     Route: 065
  4. LODINE [Concomitant]
     Route: 065
  5. ACIPHEX [Concomitant]
     Route: 065
  6. SIMETHICONE [Concomitant]
     Route: 065
  7. TYLENOL (CAPLET) [Concomitant]
     Route: 065
  8. DIOVAN [Concomitant]
     Route: 065
  9. BISACODYL [Concomitant]
     Route: 065
     Dates: start: 20040302

REACTIONS (1)
  - ACUTE MYOCARDIAL INFARCTION [None]
